FAERS Safety Report 16298329 (Version 2)
Quarter: 2020Q2

REPORT INFORMATION
  Report Type: Spontaneous
  Country: US (occurrence: US)
  Receive Date: 20190510
  Receipt Date: 20200409
  Transmission Date: 20200713
  Serious: Yes (Other)
  Sender: FDA-Public Use
  Company Number: US-ASTRAZENECA-2019SE63760

PATIENT
  Age: 20649 Day
  Sex: Male
  Weight: 60.3 kg

DRUGS (68)
  1. QUETIAPINE. [Concomitant]
     Active Substance: QUETIAPINE
     Indication: DEPRESSION
     Dates: start: 2014, end: 2016
  2. ONDANSETRON [Concomitant]
     Active Substance: ONDANSETRON
  3. LEVETIRACETAM. [Concomitant]
     Active Substance: LEVETIRACETAM
  4. PROTHROMBIN [Concomitant]
     Active Substance: PROTHROMBIN
  5. LACOSAMIDE. [Concomitant]
     Active Substance: LACOSAMIDE
  6. CHERATUSSIN [Concomitant]
     Active Substance: AMMONIUM CHLORIDE\DEXTROMETHORPHAN\SODIUM CITRATE
  7. FISH OIL [Concomitant]
     Active Substance: FISH OIL
  8. LACTULOSE. [Concomitant]
     Active Substance: LACTULOSE
     Indication: LIVER DISORDER
     Dates: start: 2014, end: 2016
  9. FENTANYL. [Concomitant]
     Active Substance: FENTANYL
  10. ZOFRAN [Concomitant]
     Active Substance: ONDANSETRON HYDROCHLORIDE
  11. VITAMIN C [Concomitant]
     Active Substance: ASCORBIC ACID
  12. PROVENTIL [Concomitant]
     Active Substance: ALBUTEROL
  13. DILTIAZEM. [Concomitant]
     Active Substance: DILTIAZEM
  14. METFORMIN [Concomitant]
     Active Substance: METFORMIN HYDROCHLORIDE
  15. NASONEX [Concomitant]
     Active Substance: MOMETASONE FUROATE
  16. PREVACID 24 HR [Suspect]
     Active Substance: LANSOPRAZOLE
     Indication: GASTROOESOPHAGEAL REFLUX DISEASE
     Route: 065
     Dates: start: 2009, end: 2018
  17. FUROSEMIDE. [Concomitant]
     Active Substance: FUROSEMIDE
     Indication: FLUID RETENTION
     Dates: start: 2014, end: 2016
  18. CHLORHEXIDINE [Concomitant]
     Active Substance: CHLORHEXIDINE
  19. GABAPENTIN. [Concomitant]
     Active Substance: GABAPENTIN
  20. ROXICODONE [Concomitant]
     Active Substance: OXYCODONE HYDROCHLORIDE
  21. ALBUTEROL. [Concomitant]
     Active Substance: ALBUTEROL
  22. OPIUM. [Concomitant]
     Active Substance: OPIUM
  23. IMODIUM [Concomitant]
     Active Substance: LOPERAMIDE HYDROCHLORIDE
  24. TRAMADOL. [Concomitant]
     Active Substance: TRAMADOL
  25. AMITRIPTYLINE [Concomitant]
     Active Substance: AMITRIPTYLINE
  26. METHYLPREDNISOLONE. [Concomitant]
     Active Substance: METHYLPREDNISOLONE
  27. PREDNISONE. [Concomitant]
     Active Substance: PREDNISONE
  28. AMILORIDE [Concomitant]
     Active Substance: AMILORIDE
     Indication: HYPERTENSION
     Dates: start: 2014, end: 2016
  29. CIPROFLOXACIN. [Concomitant]
     Active Substance: CIPROFLOXACIN
     Indication: INFECTION
     Dates: start: 2014, end: 2016
  30. SPIRONOLACTONE. [Concomitant]
     Active Substance: SPIRONOLACTONE
  31. LOVENOX [Concomitant]
     Active Substance: ENOXAPARIN SODIUM
  32. NICODERM CQ [Concomitant]
     Active Substance: NICOTINE
  33. HYDROMORPHONE [Concomitant]
     Active Substance: HYDROMORPHONE
  34. ORPHENADRINE [Concomitant]
     Active Substance: ORPHENADRINE
  35. OXYBUTYNIN. [Concomitant]
     Active Substance: OXYBUTYNIN CHLORIDE
  36. LORAZEPAM. [Concomitant]
     Active Substance: LORAZEPAM
  37. COLACE [Concomitant]
     Active Substance: DOCUSATE SODIUM
  38. NITROSTAT [Concomitant]
     Active Substance: NITROGLYCERIN
  39. SODIUM CHLORIDE. [Concomitant]
     Active Substance: SODIUM CHLORIDE
  40. FLEXERIL [Concomitant]
     Active Substance: CYCLOBENZAPRINE HYDROCHLORIDE
  41. TRAZODONE [Concomitant]
     Active Substance: TRAZODONE HYDROCHLORIDE
  42. ERYTHROCIN [Concomitant]
     Active Substance: ERYTHROMYCIN LACTOBIONATE
  43. NEXIUM [Suspect]
     Active Substance: ESOMEPRAZOLE MAGNESIUM
     Indication: GASTROOESOPHAGEAL REFLUX DISEASE
     Route: 048
     Dates: start: 2006, end: 2018
  44. PRILOSEC OTC [Suspect]
     Active Substance: OMEPRAZOLE MAGNESIUM
     Indication: GASTROOESOPHAGEAL REFLUX DISEASE
     Route: 048
     Dates: start: 2006, end: 2018
  45. RIFAXIMIN. [Concomitant]
     Active Substance: RIFAXIMIN
     Indication: LIVER DISORDER
     Dates: start: 2014, end: 2016
  46. HALDOL [Concomitant]
     Active Substance: HALOPERIDOL
  47. TUMS [Concomitant]
     Active Substance: CALCIUM CARBONATE
  48. IBUPROFEN. [Concomitant]
     Active Substance: IBUPROFEN
  49. ALEVE [Concomitant]
     Active Substance: NAPROXEN SODIUM
  50. NEXIUM 24HR [Suspect]
     Active Substance: ESOMEPRAZOLE MAGNESIUM
     Indication: GASTROOESOPHAGEAL REFLUX DISEASE
     Route: 048
     Dates: start: 2014, end: 2018
  51. BENADRYL [Concomitant]
     Active Substance: DIPHENHYDRAMINE HYDROCHLORIDE
  52. NARCAN [Concomitant]
     Active Substance: NALOXONE HYDROCHLORIDE
  53. THIAMINE. [Concomitant]
     Active Substance: THIAMINE
  54. METHOCARBAMOL. [Concomitant]
     Active Substance: METHOCARBAMOL
  55. VITAMIN D2 [Concomitant]
     Active Substance: ERGOCALCIFEROL
  56. DICYCLOMINE [Concomitant]
     Active Substance: DICYCLOMINE HYDROCHLORIDE
  57. CETIRIZINE [Concomitant]
     Active Substance: CETIRIZINE HYDROCHLORIDE
  58. SULFAMETHOXAZOLE [Concomitant]
     Active Substance: SULFAMETHOXAZOLE
  59. FAMOTIDINE. [Concomitant]
     Active Substance: FAMOTIDINE
  60. PRILOSEC [Suspect]
     Active Substance: OMEPRAZOLE MAGNESIUM
     Indication: GASTROOESOPHAGEAL REFLUX DISEASE
     Route: 048
     Dates: start: 2006, end: 2018
  61. PREVACID [Suspect]
     Active Substance: LANSOPRAZOLE
     Indication: GASTROOESOPHAGEAL REFLUX DISEASE
     Route: 065
     Dates: start: 2006, end: 2018
  62. PROTONIX [Suspect]
     Active Substance: PANTOPRAZOLE SODIUM
     Indication: GASTROOESOPHAGEAL REFLUX DISEASE
     Dosage: 10 CC/ HR IV
     Route: 065
     Dates: start: 20130612
  63. OXYCODONE [Concomitant]
     Active Substance: OXYCODONE
     Indication: PAIN
     Dates: start: 2014, end: 2016
  64. RIFLAXIMIN [Concomitant]
  65. MARIJUANA [Concomitant]
     Active Substance: CANNABIS SATIVA SUBSP. INDICA TOP
  66. SERTRALINE [Concomitant]
     Active Substance: SERTRALINE HYDROCHLORIDE
  67. PHENYTOIN. [Concomitant]
     Active Substance: PHENYTOIN
  68. LYRICA [Concomitant]
     Active Substance: PREGABALIN

REACTIONS (3)
  - Acute kidney injury [Not Recovered/Not Resolved]
  - Chronic kidney disease [Unknown]
  - Renal failure [Unknown]

NARRATIVE: CASE EVENT DATE: 20130612
